FAERS Safety Report 8155909-2 (Version None)
Quarter: 2012Q1

REPORT INFORMATION
  Report Type: 
  Country: None (occurrence: None)
  Receive Date: 20120222
  Receipt Date: 20120221
  Transmission Date: 20120608
  Serious: Yes (Death, Other)
  Sender: FDA-Public Use
  Company Number: CO-ABBOTT-12P-036-0902995-00

PATIENT
  Sex: Female
  Weight: 55 kg

DRUGS (1)
  1. HUMIRA [Suspect]
     Indication: RHEUMATOID ARTHRITIS
     Route: 058
     Dates: start: 20100701, end: 20111209

REACTIONS (5)
  - SEPSIS [None]
  - INCISION SITE INFECTION [None]
  - CARDIO-RESPIRATORY ARREST [None]
  - HYPOTENSION [None]
  - HIP SURGERY [None]
